FAERS Safety Report 12630806 (Version 1)
Quarter: 2016Q3

REPORT INFORMATION
  Report Type: Spontaneous
  Country: US (occurrence: US)
  Receive Date: 20160808
  Receipt Date: 20160808
  Transmission Date: 20161109
  Serious: No
  Sender: FDA-Public Use
  Company Number: US-PFIZER INC-2016365439

PATIENT

DRUGS (2)
  1. CELECOXIB. [Suspect]
     Active Substance: CELECOXIB
     Dosage: UNK
  2. ACETYLSALICYLIC ACID [Suspect]
     Active Substance: ASPIRIN
     Dosage: UNK

REACTIONS (2)
  - Drug intolerance [Unknown]
  - Drug hypersensitivity [Unknown]
